FAERS Safety Report 17487631 (Version 1)
Quarter: 2020Q1

REPORT INFORMATION
  Report Type: Spontaneous
  Country: DE (occurrence: DE)
  Receive Date: 20200303
  Receipt Date: 20200303
  Transmission Date: 20200409
  Serious: Yes (Other)
  Sender: FDA-Public Use
  Company Number: DE-PFIZER INC-2020086255

PATIENT
  Sex: Male

DRUGS (1)
  1. LYRICA [Suspect]
     Active Substance: PREGABALIN
     Dates: start: 2008, end: 2018

REACTIONS (7)
  - Aneurysm [Unknown]
  - Aneurysm ruptured [Unknown]
  - Aneurysm [Unknown]
  - Cardiac aneurysm [Unknown]
  - Aortic aneurysm [Unknown]
  - Cardiac aneurysm [Unknown]
  - Aortic aneurysm [Unknown]

NARRATIVE: CASE EVENT DATE: 2008
